FAERS Safety Report 8073076-0 (Version None)
Quarter: 2012Q1

REPORT INFORMATION
  Report Type: 
  Country: None (occurrence: None)
  Receive Date: 20120126
  Receipt Date: 20120117
  Transmission Date: 20120608
  Serious: Yes (Other)
  Sender: FDA-Public Use
  Company Number: NL-ASTRAZENECA-2012SE03382

PATIENT
  Age: 73 Year
  Sex: Female

DRUGS (4)
  1. DOXYCYCLINE DISPERTABLET [Suspect]
     Indication: NASOPHARYNGITIS
     Route: 048
  2. OMEPRAZOLE [Suspect]
     Route: 048
  3. DICLOFENAC SODIUM [Suspect]
     Route: 054
  4. NAPROXEN [Suspect]
     Indication: CHEST PAIN
     Route: 048

REACTIONS (1)
  - SWOLLEN TONGUE [None]
